FAERS Safety Report 8622742-4 (Version None)
Quarter: 2012Q3

REPORT INFORMATION
  Report Type: 
  Country: None (occurrence: None)
  Receive Date: 20120810
  Receipt Date: 20120730
  Transmission Date: 20120928
  Serious: Yes (Death)
  Sender: FDA-Public Use
  Company Number: 2012P1052047

PATIENT
  Age: 51 Year
  Sex: Male

DRUGS (1)
  1. ALENDAZOLE (NO PREF. NAME) [Suspect]
     Indication: INFECTION PARASITIC
     Dosage: 400 MG;PO
     Route: 048

REACTIONS (3)
  - ENCEPHALITIS [None]
  - SMALL INTESTINE CARCINOMA [None]
  - ENCEPHALOPATHY [None]
